FAERS Safety Report 5222719-5 (Version None)
Quarter: 2007Q1

REPORT INFORMATION
  Report Type: 
  Country: None (occurrence: None)
  Receive Date: 20070129
  Receipt Date: 20060801
  Transmission Date: 20070707
  Serious: No
  Sender: FDA-Public Use
  Company Number: US-GLAXOSMITHKLINE-A0614444A

PATIENT
  Age: 63 Year
  Sex: Male

DRUGS (10)
  1. COMBIVIR [Suspect]
     Indication: HIV INFECTION
     Dosage: 1TAB PER DAY
     Route: 048
     Dates: start: 20050101
  2. LANTUS [Concomitant]
  3. GLUCOVANCE [Concomitant]
  4. HUMALOG [Concomitant]
  5. NEXIUM [Concomitant]
  6. UNKNOWN MEDICATION [Concomitant]
  7. GABAPENTIN [Concomitant]
  8. ASPIRIN [Concomitant]
  9. TOPROL-XL [Concomitant]
  10. HYZAAR [Concomitant]

REACTIONS (3)
  - DRY MOUTH [None]
  - MOUTH PLAQUE [None]
  - THROAT IRRITATION [None]
